FAERS Safety Report 20822024 (Version 5)
Quarter: 2024Q1

REPORT INFORMATION
  Report Type: Spontaneous
  Country: US (occurrence: US)
  Receive Date: 20220512
  Receipt Date: 20240123
  Transmission Date: 20240409
  Serious: No
  Sender: FDA-Public Use
  Company Number: US-PFIZER INC-202200551980

PATIENT
  Age: 79 Year
  Sex: Male

DRUGS (3)
  1. XELJANZ XR [Suspect]
     Active Substance: TOFACITINIB CITRATE
     Dosage: 11 MG, 1X/DAY (IN THE MORNING)
     Route: 048
  2. BYSTOLIC [Concomitant]
     Active Substance: NEBIVOLOL HYDROCHLORIDE
  3. ALTACE [Concomitant]
     Active Substance: RAMIPRIL

REACTIONS (3)
  - Hypoacusis [Recovering/Resolving]
  - Arthritis [Unknown]
  - Musculoskeletal stiffness [Unknown]
